FAERS Safety Report 9939846 (Version 1)
Quarter: 2014Q1

REPORT INFORMATION
  Report Type: Report from Study
  Country: US (occurrence: US)
  Receive Date: 20140303
  Receipt Date: 20140303
  Transmission Date: 20141002
  Serious: Yes (Hospitalization)
  Sender: FDA-Public Use
  Company Number: US-ABBVIE-13P-163-1035054-00

PATIENT
  Age: 24 Year
  Sex: Male
  Weight: 74.91 kg

DRUGS (2)
  1. HUMIRA [Suspect]
     Indication: CROHN^S DISEASE
     Dates: start: 2009, end: 201110
  2. HUMIRA [Suspect]
     Dates: start: 20121206

REACTIONS (2)
  - Abdominal pain upper [Recovered/Resolved]
  - Crohn^s disease [Recovered/Resolved]
